FAERS Safety Report 4428837-3 (Version None)
Quarter: 2004Q3

REPORT INFORMATION
  Report Type: 
  Country: None (occurrence: None)
  Receive Date: 20040818
  Receipt Date: 20040810
  Transmission Date: 20050211
  Serious: Yes (Death)
  Sender: FDA-Public Use
  Company Number: JP-GLAXOSMITHKLINE-B0342363A

PATIENT
  Age: 30 Year
  Sex: Male

DRUGS (4)
  1. ZEFIX [Suspect]
     Route: 048
     Dates: start: 20010725, end: 20040409
  2. ADEFOVIR DIPIVOXIL [Suspect]
     Dosage: 10MG PER DAY
     Route: 048
     Dates: start: 20031027
  3. AMMONIUM GLYCYRRHIZATE [Suspect]
     Route: 042
  4. URSODEOXYCHOLIC ACID [Suspect]
     Route: 048

REACTIONS (3)
  - BLOOD CREATININE INCREASED [None]
  - CREATININE RENAL CLEARANCE DECREASED [None]
  - RENAL DISORDER [None]
